FAERS Safety Report 6534101-9 (Version None)
Quarter: 2010Q1

REPORT INFORMATION
  Report Type: 
  Country: None (occurrence: None)
  Receive Date: 20100112
  Receipt Date: 20100106
  Transmission Date: 20100710
  Serious: Yes (Other)
  Sender: FDA-Public Use
  Company Number: PHHY2010CA00914

PATIENT

DRUGS (4)
  1. ALISKIREN ALI+ [Suspect]
  2. CALCIUM CHANNEL BLOCKERS [Concomitant]
  3. DIURETICS [Concomitant]
  4. ANGIOTENSIN-RECEPTOR BLOCKER [Concomitant]

REACTIONS (3)
  - ABDOMINAL PAIN [None]
  - MICROALBUMINURIA [None]
  - URINARY TRACT INFECTION [None]
